FAERS Safety Report 17745910 (Version 1)
Quarter: 2020Q2

REPORT INFORMATION
  Report Type: Spontaneous
  Country: US (occurrence: US)
  Receive Date: 20200505
  Receipt Date: 20200505
  Transmission Date: 20200714
  Serious: No
  Sender: FDA-Public Use
  Company Number: US-SA-2020SA113206

PATIENT
  Sex: Female

DRUGS (28)
  1. VITAMIN E NOS [Concomitant]
     Active Substance: .ALPHA.-TOCOPHEROL
  2. DOXYCYCLINE HYCLATE. [Concomitant]
     Active Substance: DOXYCYCLINE HYCLATE
  3. TRIAMTERENE AND HYDROCHLOROTHIAZIDE [Concomitant]
     Active Substance: HYDROCHLOROTHIAZIDE\TRIAMTERENE
  4. STELARA [Concomitant]
     Active Substance: USTEKINUMAB
  5. VENTOLIN HFA [Concomitant]
     Active Substance: ALBUTEROL SULFATE
  6. TRULICITY [Concomitant]
     Active Substance: DULAGLUTIDE
  7. METFORMIN HCL [Concomitant]
     Active Substance: METFORMIN HYDROCHLORIDE
  8. DULOXETINE HCL [Concomitant]
     Active Substance: DULOXETINE HYDROCHLORIDE
  9. PROBIOTIC ACIDOPHILUS [CALCIUM PHOSPHATE DIBASIC;LACTOBACILLUS ACIDOPH [Concomitant]
  10. TURMERIC [CURCUMA LONGA] [Concomitant]
     Active Substance: HERBALS\TURMERIC
  11. TEMAZEPAM. [Concomitant]
     Active Substance: TEMAZEPAM
  12. DUPIXENT [Suspect]
     Active Substance: DUPILUMAB
     Indication: ASTHMA
     Dosage: 300 MG, QOW
     Route: 058
     Dates: start: 20190411
  13. METHOTREXATE. [Concomitant]
     Active Substance: METHOTREXATE
  14. CINNAMON [CINNAMOMUM VERUM] [Concomitant]
  15. TOUJEO MAX [Concomitant]
     Active Substance: INSULIN GLARGINE
  16. BREO ELLIPTA [Concomitant]
     Active Substance: FLUTICASONE FUROATE\VILANTEROL TRIFENATATE
  17. VITAMIN B [Concomitant]
     Active Substance: VITAMIN B
  18. MONTELUKAST SODIUM. [Concomitant]
     Active Substance: MONTELUKAST SODIUM
  19. CHLORZOXAZONE. [Concomitant]
     Active Substance: CHLORZOXAZONE
  20. LYRICA [Concomitant]
     Active Substance: PREGABALIN
  21. TYLENOL WITH CODEINE [Concomitant]
     Active Substance: ACETAMINOPHEN\CODEINE PHOSPHATE
  22. NEXIUM I.V. [Concomitant]
     Active Substance: ESOMEPRAZOLE SODIUM
  23. FISH OIL [Concomitant]
     Active Substance: FISH OIL
  24. CELECOXIB. [Concomitant]
     Active Substance: CELECOXIB
  25. POTASSIUM CHLORIDE. [Concomitant]
     Active Substance: POTASSIUM CHLORIDE
  26. REMICADE [Concomitant]
     Active Substance: INFLIXIMAB
  27. MAGNESIUM [Concomitant]
     Active Substance: MAGNESIUM
  28. CALCIUM [Concomitant]
     Active Substance: CALCIUM

REACTIONS (1)
  - Asthma [Unknown]

NARRATIVE: CASE EVENT DATE: 202002
